FAERS Safety Report 18526987 (Version 1)
Quarter: 2020Q4

REPORT INFORMATION
  Report Type: Spontaneous
  Country: US (occurrence: US)
  Receive Date: 20201120
  Receipt Date: 20201120
  Transmission Date: 20210114
  Serious: Yes (Hospitalization, Other)
  Sender: FDA-Public Use
  Company Number: US-MACLEODS PHARMACEUTICALS US LTD-MAC2020029170

PATIENT

DRUGS (2)
  1. ZIPRASIDONE 80 MG [Suspect]
     Active Substance: ZIPRASIDONE
     Indication: SCHIZOPHRENIA
     Dosage: 1 DOSAGE FORM, BID, EVERY 12 HOUR, PILL
     Route: 065
  2. ZIPRASIDONE 80 MG [Interacting]
     Active Substance: ZIPRASIDONE
     Dosage: 20 DOSAGE FORM, SINGLE, PILL
     Route: 065

REACTIONS (7)
  - Overdose [Recovered/Resolved]
  - Paranoia [Recovered/Resolved]
  - Psychotic disorder [Recovered/Resolved]
  - Food interaction [Recovered/Resolved]
  - Hallucination, auditory [Recovered/Resolved]
  - Delusion [Recovered/Resolved]
  - Condition aggravated [Recovered/Resolved]
